FAERS Safety Report 8295239 (Version 2)
Quarter: 2012Q4

REPORT INFORMATION
  Report Type: 
  Country: US (occurrence: US)
  Receive Date: 20111216
  Receipt Date: 20121015
  Transmission Date: 20130627
  Serious: Yes (Hospitalization)
  Sender: FDA-Public Use
  Company Number: US-GLAXOSMITHKLINE-A0776263A

PATIENT
  Age: 54 Year
  Sex: Male

DRUGS (1)
  1. AVANDIA [Suspect]
     Indication: DIABETES MELLITUS
     Dosage: 4MG Unknown
     Route: 048
     Dates: end: 200208

REACTIONS (7)
  - Cardiac disorder [Not Recovered/Not Resolved]
  - Labile blood pressure [Unknown]
  - Myocardial infarction [Unknown]
  - Obstruction [Unknown]
  - Hypertension [Unknown]
  - Chest discomfort [Unknown]
  - Dyspnoea [Unknown]
